FAERS Safety Report 10188767 (Version 1)
Quarter: 2014Q2

REPORT INFORMATION
  Report Type: Spontaneous
  Country: US (occurrence: US)
  Receive Date: 20140522
  Receipt Date: 20140522
  Transmission Date: 20141212
  Serious: Yes (Other)
  Sender: FDA-Public Use
  Company Number: US-PFIZER INC-2014135325

PATIENT
  Sex: Female

DRUGS (2)
  1. PREMARIN [Suspect]
     Dosage: UNK
  2. PROVERA [Suspect]
     Dosage: UNK

REACTIONS (6)
  - Spinal cord neoplasm [Unknown]
  - Brain neoplasm [Unknown]
  - Fibromyalgia [Unknown]
  - Intervertebral disc disorder [Unknown]
  - Insomnia [Unknown]
  - Hot flush [Unknown]
